FAERS Safety Report 7831455-8 (Version None)
Quarter: 2011Q4

REPORT INFORMATION
  Report Type: 
  Country: None (occurrence: None)
  Receive Date: 20111021
  Receipt Date: 20111020
  Transmission Date: 20120403
  Serious: Yes (Life-Threatening, Hospitalization, Disabling, Other)
  Sender: FDA-Public Use
  Company Number: AU-B.I. PHARMACEUTICALS,INC./RIDGEFIELD-2011-AU-01160AU

PATIENT
  Sex: Female
  Weight: 81 kg

DRUGS (7)
  1. DIGOXIN [Concomitant]
     Dosage: 62.5 MG
  2. LASIX [Concomitant]
     Dosage: 40 MG
  3. CALCIUM CARBONATE [Concomitant]
  4. NOTEN [Concomitant]
     Dosage: 50 MG
  5. PRADAXA [Suspect]
     Indication: CEREBROVASCULAR ACCIDENT PROPHYLAXIS
     Dosage: 220 MG
     Dates: start: 20110901, end: 20110902
  6. PRADAXA [Suspect]
     Indication: ATRIAL FIBRILLATION
  7. ANASTROZOLE [Concomitant]
     Dosage: 1 MG

REACTIONS (1)
  - CEREBROVASCULAR ACCIDENT [None]
